FAERS Safety Report 5341508-4 (Version None)
Quarter: 2007Q2

REPORT INFORMATION
  Report Type: 
  Country: None (occurrence: None)
  Receive Date: 20070530
  Receipt Date: 20070530
  Transmission Date: 20071010
  Serious: Yes (Hospitalization)
  Sender: FDA-Public Use
  Company Number: None

PATIENT
  Age: 45 Year
  Sex: Male
  Weight: 102 kg

DRUGS (9)
  1. COLISTIN SULFATE [Suspect]
     Indication: DRUG RESISTANCE
     Dosage: 250MG Q12H IV
     Route: 042
     Dates: start: 20060619, end: 20060620
  2. CLONIDINE [Concomitant]
  3. LISINOPRIL [Concomitant]
  4. PREMIX [Concomitant]
  5. M.V.I. [Concomitant]
  6. DOCUSATE [Concomitant]
  7. BACLOFEN [Concomitant]
  8. TEGRETOL [Concomitant]
  9. NSAID [Concomitant]

REACTIONS (4)
  - ACUTE RESPIRATORY FAILURE [None]
  - GENERAL PHYSICAL HEALTH DETERIORATION [None]
  - PANCREATITIS [None]
  - RENAL FAILURE ACUTE [None]
